FAERS Safety Report 16833023 (Version 1)
Quarter: 2019Q3

REPORT INFORMATION
  Report Type: Spontaneous
  Country: US (occurrence: US)
  Receive Date: 20190920
  Receipt Date: 20190920
  Transmission Date: 20191005
  Serious: Yes (Hospitalization)
  Sender: FDA-Public Use
  Company Number: US-IGSA-SR10009103

PATIENT
  Sex: Female

DRUGS (1)
  1. GAMUNEX-C [Suspect]
     Active Substance: HUMAN IMMUNOGLOBULIN G
     Indication: MYASTHENIA GRAVIS
     Dosage: 50 G, Q.WK.
     Route: 042
     Dates: start: 20190904, end: 20190904

REACTIONS (2)
  - Urticaria [Unknown]
  - Chest pain [Unknown]

NARRATIVE: CASE EVENT DATE: 20190904
